FAERS Safety Report 21710278 (Version 1)
Quarter: 2022Q4

REPORT INFORMATION
  Report Type: Report from Study
  Country: CO (occurrence: CO)
  Receive Date: 20221211
  Receipt Date: 20221211
  Transmission Date: 20230112
  Serious: Yes (Death, Hospitalization)
  Sender: FDA-Public Use
  Company Number: CO-JNJFOC-20221205150

PATIENT
  Age: 67 Year
  Sex: Male
  Weight: 68 kg

DRUGS (1)
  1. IMBRUVICA [Suspect]
     Active Substance: IBRUTINIB
     Indication: Mantle cell lymphoma
     Route: 048
     Dates: start: 20211220

REACTIONS (3)
  - Pneumonia [Fatal]
  - Haemophilus infection [Fatal]
  - Renal failure [Fatal]

NARRATIVE: CASE EVENT DATE: 20221110
